FAERS Safety Report 23381899 (Version 2)
Quarter: 2024Q1

REPORT INFORMATION
  Report Type: Spontaneous
  Country: US (occurrence: US)
  Receive Date: 20240109
  Receipt Date: 20240126
  Transmission Date: 20240410
  Serious: No
  Sender: FDA-Public Use
  Company Number: US-AMGEN-USASP2024002435

PATIENT
  Age: 84 Year
  Sex: Female

DRUGS (2)
  1. AIMOVIG [Suspect]
     Active Substance: ERENUMAB-AOOE
     Indication: Migraine
     Dosage: 140 MILLIGRAM, QMO
     Route: 058
     Dates: start: 20240104
  2. AIMOVIG [Suspect]
     Active Substance: ERENUMAB-AOOE
     Dosage: 140 MILLIGRAM, QMO
     Route: 058

REACTIONS (7)
  - Injection site vesicles [Recovering/Resolving]
  - Injury associated with device [Recovering/Resolving]
  - Wrong technique in product usage process [Recovering/Resolving]
  - Accidental exposure to product [Recovering/Resolving]
  - Product administered at inappropriate site [Recovering/Resolving]
  - Drug dose omission by device [Recovering/Resolving]
  - Product communication issue [Recovering/Resolving]

NARRATIVE: CASE EVENT DATE: 20240104
